FAERS Safety Report 5448558-8 (Version None)
Quarter: 2007Q3

REPORT INFORMATION
  Report Type: 
  Country: None (occurrence: None)
  Receive Date: 20070911
  Receipt Date: 20070906
  Transmission Date: 20080115
  Serious: Yes (Hospitalization)
  Sender: FDA-Public Use
  Company Number: US-ASTRAZENECA-2007UW21167

PATIENT
  Age: 65 Year
  Sex: Female
  Weight: 76.2 kg

DRUGS (7)
  1. ATACAND HCT [Suspect]
     Route: 048
  2. ATACAND HCT [Suspect]
     Dosage: 32/12.5 TABLETS
     Route: 048
  3. PLAVIX [Concomitant]
  4. ASPIRIN [Concomitant]
  5. OMEGA 3 [Concomitant]
  6. SAM-E [Concomitant]
  7. PANTOPRAZOLE SODIUM [Concomitant]

REACTIONS (5)
  - CHEST PAIN [None]
  - GASTROOESOPHAGEAL REFLUX DISEASE [None]
  - OEDEMA MOUTH [None]
  - ORAL PAIN [None]
  - TACHYCARDIA [None]
